FAERS Safety Report 23296231 (Version 2)
Quarter: 2023Q4

REPORT INFORMATION
  Report Type: Other
  Country: None (occurrence: IN)
  Receive Date: 20231214
  Receipt Date: 20231229
  Transmission Date: 20240109
  Serious: Yes (Hospitalization)
  Sender: FDA-Public Use
  Company Number: IN-MLMSERVICE-20231130-4697727-1

PATIENT
  Age: 32 Year
  Sex: Female

DRUGS (2)
  1. OXYGEN [Suspect]
     Active Substance: OXYGEN
     Indication: COVID-19 treatment
  2. DEXAMETHASONE [Suspect]
     Active Substance: DEXAMETHASONE
     Route: 040

REACTIONS (1)
  - Rhinocerebral mucormycosis [Recovered/Resolved]
